FAERS Safety Report 14971123 (Version 2)
Quarter: 2018Q2

REPORT INFORMATION
  Report Type: Report from Study
  Country: US (occurrence: US)
  Receive Date: 20180604
  Receipt Date: 20180606
  Transmission Date: 20180711
  Serious: Yes (Death)
  Sender: FDA-Public Use
  Company Number: US-BEH-2018091267

PATIENT
  Age: 57 Year
  Sex: Female
  Weight: 71.2 kg

DRUGS (29)
  1. ANORO ELLIPTA [Concomitant]
     Active Substance: UMECLIDINIUM BROMIDE\VILANTEROL TRIFENATATE
  2. ZEMAIRA [Suspect]
     Active Substance: .ALPHA.1-PROTEINASE INHIBITOR HUMAN
     Indication: ALPHA-1 ANTI-TRYPSIN DEFICIENCY
     Dosage: 60 MG/KG, QW
     Route: 042
     Dates: start: 20090107
  3. MORPHINE [Concomitant]
     Active Substance: MORPHINE
  4. OXYGEN. [Concomitant]
     Active Substance: OXYGEN
  5. ADVAIR HFA [Concomitant]
     Active Substance: FLUTICASONE PROPIONATE\SALMETEROL XINAFOATE
  6. ALBUTEROL                          /00139501/ [Concomitant]
     Active Substance: ALBUTEROL
  7. EMETROL [Concomitant]
     Active Substance: DEXTROSE\FRUCTOSE\PHOSPHORIC ACID
  8. GAMMAGARD [Concomitant]
     Active Substance: HUMAN IMMUNOGLOBULIN G
  9. FLONASE [Concomitant]
     Active Substance: FLUTICASONE PROPIONATE
  10. DIPHENHYDRAMINE. [Concomitant]
     Active Substance: DIPHENHYDRAMINE
  11. ZEMAIRA [Suspect]
     Active Substance: .ALPHA.1-PROTEINASE INHIBITOR HUMAN
     Dosage: UNK UNK, QW
     Route: 042
  12. MELATONIN [Concomitant]
     Active Substance: MELATONIN
  13. ACETAMINOPHEN. [Concomitant]
     Active Substance: ACETAMINOPHEN
  14. SODIUM CHLORIDE. [Concomitant]
     Active Substance: SODIUM CHLORIDE
  15. PREDNISONE. [Concomitant]
     Active Substance: PREDNISONE
  16. XANAX [Concomitant]
     Active Substance: ALPRAZOLAM
  17. BISACODYL. [Concomitant]
     Active Substance: BISACODYL
  18. SENNA                              /00142201/ [Concomitant]
     Active Substance: SENNA LEAF
  19. LMX                                /00033401/ [Concomitant]
  20. MARINOL                            /00003301/ [Concomitant]
     Active Substance: ALLOPURINOL
  21. FLAXSEED [Concomitant]
     Active Substance: FLAX SEED
  22. MS CONTIN [Concomitant]
     Active Substance: MORPHINE SULFATE
  23. EPINEPHRINE. [Concomitant]
     Active Substance: EPINEPHRINE
  24. SPIRIVA [Concomitant]
     Active Substance: TIOTROPIUM BROMIDE MONOHYDRATE
  25. ZOLOFT [Concomitant]
     Active Substance: SERTRALINE HYDROCHLORIDE
  26. ASPIRIN. [Concomitant]
     Active Substance: ASPIRIN
  27. DECADRON [Concomitant]
     Active Substance: DEXAMETHASONE
  28. CARDIZEM [Concomitant]
     Active Substance: DILTIAZEM HYDROCHLORIDE
  29. ZYRTEC [Concomitant]
     Active Substance: CETIRIZINE HYDROCHLORIDE

REACTIONS (1)
  - Death [Fatal]

NARRATIVE: CASE EVENT DATE: 20180526
